FAERS Safety Report 24929142 (Version 1)
Quarter: 2025Q1

REPORT INFORMATION
  Report Type: Spontaneous
  Country: US (occurrence: None)
  Receive Date: 20250205
  Receipt Date: 20250205
  Transmission Date: 20250408
  Serious: Yes (Other)
  Sender: FDA-CTU
  Company Number: None

PATIENT
  Age: 36 Year
  Sex: Female
  Weight: 48.6 kg

DRUGS (1)
  1. ARCALYST [Suspect]
     Active Substance: RILONACEPT
     Indication: Depression
     Dosage: OTHER FREQUENCY : WEEKLY;?
     Route: 030
     Dates: start: 20250108, end: 20250115

REACTIONS (3)
  - Neuropsychological symptoms [None]
  - Depression [None]
  - Intentional dose omission [None]

NARRATIVE: CASE EVENT DATE: 20250115
